FAERS Safety Report 19946350 (Version 1)
Quarter: 2021Q4

REPORT INFORMATION
  Report Type: Spontaneous
  Country: DE (occurrence: DE)
  Receive Date: 20211012
  Receipt Date: 20211012
  Transmission Date: 20220303
  Serious: Yes (Hospitalization)
  Sender: FDA-Public Use
  Company Number: DE-ADRED-06586-01

PATIENT
  Age: 80 Year
  Sex: Female

DRUGS (6)
  1. PACLITAXEL [Suspect]
     Active Substance: PACLITAXEL
     Indication: Product used for unknown indication
     Dosage: UNK
  2. METOPROLOL [Concomitant]
     Active Substance: METOPROLOL
     Dosage: 47.5 MILLIGRAM, BID (47.5 MG, 1-0-1-0, TABLETTEN)
     Route: 048
  3. METAMIZOLE [Concomitant]
     Active Substance: METAMIZOLE
     Dosage: 750 MILLIGRAM, QID (750 MG, 1-1-1-1, DROPS)
     Route: 048
  4. DEXAMETHASONE [Concomitant]
     Active Substance: DEXAMETHASONE
     Dosage: 4 MILLIGRAM, QD (4 MG, 1-0-0-0, TABLETTEN)
     Route: 048
  5. LERCANIDIPINE [Concomitant]
     Active Substance: LERCANIDIPINE
     Dosage: 10 MILLIGRAM, BID (10 MG, 1-0-1-0, TABLETTEN)
     Route: 048
  6. LETROZOLE [Concomitant]
     Active Substance: LETROZOLE
     Dosage: 2.5 MILLIGRAM, QD (2.5 MG, 1-0-0-0, TABLETTEN)
     Route: 048

REACTIONS (2)
  - Dysphagia [Unknown]
  - Infection [Unknown]

NARRATIVE: CASE EVENT DATE: 20200901
